FAERS Safety Report 7493120-9 (Version None)
Quarter: 2011Q2

REPORT INFORMATION
  Report Type: 
  Country: None (occurrence: None)
  Receive Date: 20110520
  Receipt Date: 20110516
  Transmission Date: 20111010
  Serious: Yes (Hospitalization)
  Sender: FDA-Public Use
  Company Number: CH-US-EMD SERONO, INC.-7059804

PATIENT
  Sex: Male

DRUGS (2)
  1. REBIF [Suspect]
     Route: 064
     Dates: start: 20100415, end: 20100628
  2. REBIF [Suspect]
     Indication: PRODUCT USED FOR UNKNOWN INDICATION
     Route: 064
     Dates: start: 20090921, end: 20100214

REACTIONS (1)
  - PULMONARY OEDEMA [None]
